FAERS Safety Report 13564263 (Version 3)
Quarter: 2017Q2

REPORT INFORMATION
  Report Type: Spontaneous
  Country: JP (occurrence: JP)
  Receive Date: 20170519
  Receipt Date: 20170630
  Transmission Date: 20170830
  Serious: Yes (Hospitalization)
  Sender: FDA-Public Use
  Company Number: PHJP2017JP016482

PATIENT
  Age: 81 Year
  Sex: Male

DRUGS (6)
  1. EXELON PATCH [Suspect]
     Active Substance: RIVASTIGMINE
     Indication: DEMENTIA ALZHEIMER^S TYPE
     Dosage: 4.5 MG (PATCH 2.5, 1.9 MG/24H), QD
     Route: 062
     Dates: end: 20160201
  2. EXELON PATCH [Suspect]
     Active Substance: RIVASTIGMINE
     Dosage: 13.5 MG (PATCH 7.5, 6.9 MG/24H) QD
     Route: 062
     Dates: start: 20160621, end: 20161215
  3. EXELON PATCH [Suspect]
     Active Substance: RIVASTIGMINE
     Dosage: 18 MG (PATCH 10, 9.5 MG/24H),QD
     Route: 062
     Dates: start: 20170302, end: 20170615
  4. EXELON PATCH [Suspect]
     Active Substance: RIVASTIGMINE
     Dosage: 9 MG (PATCH 5, 4.6 MG/24H) QD
     Route: 062
     Dates: start: 20160201, end: 20160620
  5. EXELON PATCH [Suspect]
     Active Substance: RIVASTIGMINE
     Dosage: 9 MG (PATCH 5, 4.6 MG/24H) , QD
     Route: 062
     Dates: start: 20170210, end: 20170301
  6. GLACTIV [Concomitant]
     Active Substance: SITAGLIPTIN
     Indication: PRODUCT USED FOR UNKNOWN INDICATION
     Dosage: 50 MG, UNK
     Route: 048

REACTIONS (1)
  - Ileus [Recovered/Resolved]

NARRATIVE: CASE EVENT DATE: 20161215
